FAERS Safety Report 21064172 (Version 1)
Quarter: 2022Q3

REPORT INFORMATION
  Report Type: Spontaneous
  Country: US (occurrence: None)
  Receive Date: 20220708
  Receipt Date: 20220708
  Transmission Date: 20221027
  Serious: Yes (Hospitalization, Other)
  Sender: FDA-Public Use
  Company Number: None

PATIENT
  Age: 59 Year
  Sex: Female

DRUGS (2)
  1. TEMOZOLOMIDE [Suspect]
     Active Substance: TEMOZOLOMIDE
     Indication: Brain neoplasm malignant
     Dosage: 440MG DAYS 1-5/28DS ORAL?
     Route: 048
     Dates: start: 202201
  2. TEMOZOLOMIDE [Suspect]
     Active Substance: TEMOZOLOMIDE
     Indication: Brain neoplasm malignant
     Dosage: 440MG DAYS 1-5/28DS ORAL?
     Route: 048
     Dates: start: 202201

REACTIONS (2)
  - Dyspnoea [None]
  - Haemoglobin decreased [None]

NARRATIVE: CASE EVENT DATE: 20220629
